FAERS Safety Report 23564506 (Version 1)
Quarter: 2024Q1

REPORT INFORMATION
  Report Type: Spontaneous
  Country: GB (occurrence: GB)
  Receive Date: 20240226
  Receipt Date: 20240226
  Transmission Date: 20240410
  Serious: Yes (Other)
  Sender: FDA-Public Use
  Company Number: GB-MHRA-MED-202402120827466030-QWZLJ

PATIENT
  Age: 57 Year
  Sex: Male
  Weight: 100 kg

DRUGS (1)
  1. DULOXETINE [Suspect]
     Active Substance: DULOXETINE
     Indication: Depression
     Dosage: 90 MILLIGRAM, ONCE A DAY
     Route: 065
     Dates: start: 20231130, end: 202401

REACTIONS (1)
  - Dystonia [Recovered/Resolved]
